FAERS Safety Report 17155243 (Version 1)
Quarter: 2019Q4

REPORT INFORMATION
  Report Type: Report from Study
  Country: US (occurrence: US)
  Receive Date: 20191215
  Receipt Date: 20191215
  Transmission Date: 20200122
  Serious: Yes (Death)
  Sender: FDA-Public Use
  Company Number: US-EISAI MEDICAL RESEARCH-EC-2019-065454

PATIENT
  Age: 64 Year
  Sex: Male

DRUGS (2)
  1. LENVIMA [Suspect]
     Active Substance: LENVATINIB
     Indication: HEPATOCELLULAR CARCINOMA
     Route: 048
     Dates: start: 20191017, end: 20191206
  2. KEYTRUDA [Suspect]
     Active Substance: PEMBROLIZUMAB
     Indication: PRODUCT USED FOR UNKNOWN INDICATION
     Dosage: DOSE AND FREQUENCY UNKNOWN.
     Route: 041

REACTIONS (4)
  - Hepatic enzyme increased [Unknown]
  - Large intestine perforation [Fatal]
  - Haemochromatosis [Unknown]
  - Blood iron increased [Unknown]

NARRATIVE: CASE EVENT DATE: 20191025
